FAERS Safety Report 24949741 (Version 1)
Quarter: 2025Q1

REPORT INFORMATION
  Report Type: Spontaneous
  Country: AU (occurrence: AU)
  Receive Date: 20250210
  Receipt Date: 20250210
  Transmission Date: 20250408
  Serious: Yes (Hospitalization)
  Sender: BAYER HEALTHCARE PHARMACEUTICALS INC.
  Company Number: AU-BAYER-2025A017982

PATIENT
  Age: 37 Year
  Sex: Male

DRUGS (2)
  1. GADOBUTROL [Suspect]
     Active Substance: GADOBUTROL
     Indication: Magnetic resonance imaging
     Route: 042
     Dates: start: 20250203, end: 20250203
  2. GADOBUTROL [Suspect]
     Active Substance: GADOBUTROL
     Indication: Myocarditis

REACTIONS (4)
  - Blindness [None]
  - Erythema [None]
  - Swelling face [None]
  - Throat irritation [None]

NARRATIVE: CASE EVENT DATE: 20250203
